FAERS Safety Report 6587933-5 (Version None)
Quarter: 2010Q1

REPORT INFORMATION
  Report Type: 
  Country: None (occurrence: None)
  Receive Date: 20100217
  Receipt Date: 20100217
  Transmission Date: 20100710
  Serious: Yes (Hospitalization)
  Sender: FDA-Public Use
  Company Number: None

PATIENT
  Age: 60 Year
  Sex: Male
  Weight: 94.55 kg

DRUGS (1)
  1. PREDNISONE [Suspect]
     Dates: start: 20091205, end: 20091214

REACTIONS (3)
  - ANXIETY [None]
  - HYPERGLYCAEMIA [None]
  - PALPITATIONS [None]
